FAERS Safety Report 5470885-9 (Version None)
Quarter: 2007Q3

REPORT INFORMATION
  Report Type: 
  Country: None (occurrence: None)
  Receive Date: 20070925
  Receipt Date: 20070910
  Transmission Date: 20080115
  Serious: Yes (Hospitalization)
  Sender: FDA-Public Use
  Company Number: 2007RR-09908

PATIENT
  Age: 63 Year
  Sex: Male

DRUGS (1)
  1. CEFACLOR [Suspect]
     Indication: ANIMAL BITE
     Dosage: 250 MG, 20 MG

REACTIONS (8)
  - BLISTER [None]
  - ECCHYMOSIS [None]
  - LEUKOCYTOCLASTIC VASCULITIS [None]
  - PAIN IN EXTREMITY [None]
  - PURPURA [None]
  - PYREXIA [None]
  - RASH ERYTHEMATOUS [None]
  - URTICARIA [None]
